FAERS Safety Report 6289194-3 (Version None)
Quarter: 2009Q3

REPORT INFORMATION
  Report Type: 
  Country: None (occurrence: None)
  Receive Date: 20090729
  Receipt Date: 20070614
  Transmission Date: 20100115
  Serious: Yes (Other)
  Sender: FDA-Public Use
  Company Number: US-ASTRAZENECA-2006UW07896

PATIENT
  Age: 19079 Day
  Sex: Female
  Weight: 93 kg

DRUGS (18)
  1. SEROQUEL [Suspect]
     Indication: ANXIETY
     Dosage: 50-125 MG
     Route: 048
     Dates: start: 20020201, end: 20070101
  2. SEROQUEL [Suspect]
     Indication: SLEEP DISORDER
     Dosage: 50-125 MG
     Route: 048
     Dates: start: 20020201, end: 20070101
  3. SEROQUEL [Suspect]
     Indication: DEPRESSION
     Dosage: 50-125 MG
     Route: 048
     Dates: start: 20020201, end: 20070101
  4. SEROQUEL [Suspect]
     Dosage: STRENGTH 25MG,  DOSE 25MG TO 50MG.
     Route: 048
     Dates: start: 20020814
  5. SEROQUEL [Suspect]
     Dosage: STRENGTH 25MG,  DOSE 25MG TO 50MG.
     Route: 048
     Dates: start: 20020814
  6. SEROQUEL [Suspect]
     Dosage: STRENGTH 25MG,  DOSE 25MG TO 50MG.
     Route: 048
     Dates: start: 20020814
  7. CELEXA [Concomitant]
     Dates: start: 20020814
  8. EFFEXOR [Concomitant]
  9. GEODON [Concomitant]
     Dates: start: 20070301
  10. ALPRAZOLAM [Concomitant]
  11. VERAPAMIL [Concomitant]
     Route: 048
  12. PREVACID [Concomitant]
     Dosage: STRENGTH 15MG, 30MG.  DOSE 15-30 MG DAILY
     Route: 048
  13. BUPROPION HCL [Concomitant]
  14. KLOR-CON [Concomitant]
  15. PRANDIN [Concomitant]
  16. TRAMADOL HCL [Concomitant]
  17. FLEXERIL [Concomitant]
     Route: 048
  18. SKELAXIN [Concomitant]
     Indication: PAIN

REACTIONS (2)
  - DIABETES MELLITUS [None]
  - DIABETIC NEUROPATHY [None]
